FAERS Safety Report 9009593 (Version 1)
Quarter: 2013Q1

REPORT INFORMATION
  Report Type: Spontaneous
  Country: FR (occurrence: FR)
  Receive Date: 20130110
  Receipt Date: 20130110
  Transmission Date: 20140127
  Serious: Yes (Other)
  Sender: FDA-Public Use
  Company Number: FR-ASTRAZENECA-2013SE01155

PATIENT
  Age: 3133 Week
  Sex: Female

DRUGS (6)
  1. NAROPEINE [Suspect]
     Indication: LOCAL ANAESTHESIA
     Route: 053
     Dates: start: 20120614, end: 20120614
  2. ATACAND [Concomitant]
  3. DEPAMIDE [Concomitant]
     Route: 048
  4. TAGAMET [Concomitant]
     Indication: PREMEDICATION
  5. ATARAX [Concomitant]
     Indication: PREMEDICATION
  6. NON-STEROIDAL INFLAMMATORY DRUGS [Concomitant]

REACTIONS (5)
  - Dysgeusia [Recovered/Resolved]
  - Agitation [Recovered/Resolved]
  - Dyspnoea [Recovered/Resolved]
  - Depressed level of consciousness [Recovered/Resolved]
  - Chest discomfort [Recovered/Resolved]
